FAERS Safety Report 20753003 (Version 1)
Quarter: 2022Q2

REPORT INFORMATION
  Report Type: Spontaneous
  Country: US (occurrence: None)
  Receive Date: 20220426
  Receipt Date: 20220426
  Transmission Date: 20220721
  Serious: No
  Sender: FDA-Public Use
  Company Number: US-ROCHE-2977895

PATIENT
  Sex: Female

DRUGS (1)
  1. ESBRIET [Suspect]
     Active Substance: PIRFENIDONE
     Indication: Idiopathic pulmonary fibrosis
     Dosage: 1 TABLET THRICE DAILY FOR 1 WEEK WITH MEALS, 2 TABLETS THRICE DAILY FOR 1 WEEK WITH MEALS THEN 3 TAB
     Route: 048

REACTIONS (1)
  - Dry mouth [Not Recovered/Not Resolved]
